FAERS Safety Report 19622094 (Version 4)
Quarter: 2022Q1

REPORT INFORMATION
  Report Type: Report from Study
  Country: US (occurrence: US)
  Receive Date: 20210728
  Receipt Date: 20220316
  Transmission Date: 20220424
  Serious: No
  Sender: FDA-Public Use
  Company Number: NVSC2021US166510

PATIENT
  Age: 42 Year
  Sex: Female

DRUGS (2)
  1. KESIMPTA [Suspect]
     Active Substance: OFATUMUMAB
     Indication: Relapsing multiple sclerosis
     Dosage: 20 MG, QW(BENEATH THE SKIN,VIA INJECTION)
     Route: 058
     Dates: start: 20210615
  2. KESIMPTA [Suspect]
     Active Substance: OFATUMUMAB
     Dosage: 20 UNK, QMO
     Route: 058
     Dates: start: 20210615

REACTIONS (3)
  - Feeling abnormal [Not Recovered/Not Resolved]
  - Headache [Not Recovered/Not Resolved]
  - Fatigue [Not Recovered/Not Resolved]

NARRATIVE: CASE EVENT DATE: 20210615
